FAERS Safety Report 8581214-6 (Version None)
Quarter: 2012Q3

REPORT INFORMATION
  Report Type: 
  Country: None (occurrence: None)
  Receive Date: 20120809
  Receipt Date: 20120731
  Transmission Date: 20120928
  Serious: Yes (Hospitalization)
  Sender: FDA-Public Use
  Company Number: IE-AMGEN-IRLSP2012013219

PATIENT
  Sex: Female

DRUGS (13)
  1. DEXAMETHASONE [Concomitant]
     Dosage: UNK
  2. LANSOPRAZOLE [Concomitant]
     Dosage: UNK
  3. NEULASTA [Suspect]
     Indication: CHEMOTHERAPY
     Dosage: 6 MG, Q2WK
     Route: 058
     Dates: start: 20111207
  4. LYRICA [Concomitant]
     Dosage: UNK
  5. ANTINEOPLASTIC AGENTS [Concomitant]
  6. LEXAPRO [Concomitant]
     Dosage: UNK
  7. VALOID                             /00014902/ [Concomitant]
     Dosage: UNK
  8. ZOFRAN [Concomitant]
     Dosage: UNK
  9. AMITRIPTYLINE HCL [Concomitant]
     Dosage: UNK
  10. EMEND [Concomitant]
     Dosage: UNK
  11. MOTILIUM                           /00498201/ [Concomitant]
     Dosage: UNK
  12. MYCOSTATIN [Concomitant]
     Dosage: UNK
  13. ATIVAN [Concomitant]
     Dosage: UNK

REACTIONS (2)
  - PYREXIA [None]
  - INFLUENZA [None]
